FAERS Safety Report 7179829-5 (Version None)
Quarter: 2010Q4

REPORT INFORMATION
  Report Type: 
  Country: None (occurrence: None)
  Receive Date: 20101221
  Receipt Date: 20101217
  Transmission Date: 20110411
  Serious: Yes (Other)
  Sender: FDA-Public Use
  Company Number: US-BRISTOL-MYERS SQUIBB COMPANY-14738579

PATIENT
  Age: 53 Year
  Sex: Male
  Weight: 78 kg

DRUGS (6)
  1. ABILIFY [Suspect]
     Indication: BIPOLAR I DISORDER
     Dosage: 1 DF=10-20MG,DOSE DECREASED DURING THERAPY.
     Dates: start: 20050101, end: 20080101
  2. SEROQUEL [Suspect]
  3. KLONOPIN [Concomitant]
  4. WELLBUTRIN [Concomitant]
     Dates: end: 20050201
  5. ZYPREXA [Concomitant]
  6. PAXIL [Concomitant]

REACTIONS (5)
  - AKATHISIA [None]
  - NEUROLOGICAL EXAMINATION ABNORMAL [None]
  - PAIN [None]
  - RESTLESS LEGS SYNDROME [None]
  - TARDIVE DYSKINESIA [None]
